FAERS Safety Report 4795335-7 (Version None)
Quarter: 2005Q4

REPORT INFORMATION
  Report Type: 
  Country: None (occurrence: None)
  Receive Date: 20051012
  Receipt Date: 20050728
  Transmission Date: 20060501
  Serious: Yes (Hospitalization)
  Sender: FDA-Public Use
  Company Number: DE-GLAXOSMITHKLINE-D0047204A

PATIENT
  Age: 67 Year
  Sex: Male
  Weight: 72 kg

DRUGS (5)
  1. THIOGUANINE [Suspect]
     Indication: ACUTE MYELOID LEUKAEMIA
     Route: 048
     Dates: start: 20050501, end: 20050507
  2. ALEXAN [Concomitant]
     Indication: ACUTE MYELOID LEUKAEMIA
     Route: 042
     Dates: start: 20050301, end: 20050507
  3. DAUNOBLASTIN [Concomitant]
     Indication: ACUTE MYELOID LEUKAEMIA
     Dosage: 110MG PER DAY
     Route: 042
     Dates: start: 20050501, end: 20050503
  4. NOVANTRONE [Concomitant]
     Indication: ACUTE MYELOID LEUKAEMIA
     Dosage: 18MG PER DAY
     Route: 065
     Dates: start: 20050303, end: 20050305
  5. OXYGESIC [Concomitant]
     Indication: PAIN
     Dosage: 30MG PER DAY
     Route: 065
     Dates: start: 20041001, end: 20041001

REACTIONS (12)
  - ASTHENIA [None]
  - DIARRHOEA [None]
  - FOLLICULITIS [None]
  - GLOSSITIS [None]
  - LEUKOPENIA [None]
  - PAIN IN EXTREMITY [None]
  - PLATELET COUNT INCREASED [None]
  - PYREXIA [None]
  - RASH PAPULAR [None]
  - THROMBOCYTOPENIA [None]
  - VISUAL DISTURBANCE [None]
  - VOMITING [None]
